FAERS Safety Report 5376172-1 (Version None)
Quarter: 2007Q3

REPORT INFORMATION
  Report Type: 
  Country: None (occurrence: None)
  Receive Date: 20070702
  Receipt Date: 20070625
  Transmission Date: 20080115
  Serious: Yes (Disabling)
  Sender: FDA-Public Use
  Company Number: BR-ASTRAZENECA-2007UW15245

PATIENT
  Age: 57 Year
  Sex: Female
  Weight: 78 kg

DRUGS (1)
  1. NAROPIN [Suspect]
     Indication: PLASTIC SURGERY
     Dates: start: 20070510, end: 20070510

REACTIONS (1)
  - DEMYELINATING POLYNEUROPATHY [None]
